FAERS Safety Report 6373648-5 (Version None)
Quarter: 2009Q3

REPORT INFORMATION
  Report Type: 
  Country: None (occurrence: None)
  Receive Date: 20090924
  Receipt Date: 20090914
  Transmission Date: 20100115
  Serious: Yes (Death, Hospitalization, Other)
  Sender: FDA-Public Use
  Company Number: ZA-PFIZER INC-2009268733

PATIENT

DRUGS (2)
  1. CLINDAMYCIN HCL [Suspect]
     Indication: PNEUMONIA
     Dosage: UNK
     Route: 048
  2. CLINDAMYCIN HCL [Suspect]
     Indication: RESPIRATORY DISORDER

REACTIONS (3)
  - ABDOMINAL PAIN [None]
  - CLOSTRIDIUM DIFFICILE COLITIS [None]
  - HAEMORRHAGE [None]
